FAERS Safety Report 19130817 (Version 2)
Quarter: 2021Q4

REPORT INFORMATION
  Report Type: Spontaneous
  Country: US (occurrence: US)
  Receive Date: 20210414
  Receipt Date: 20211031
  Transmission Date: 20220303
  Serious: Yes (Hospitalization, Other)
  Sender: FDA-Public Use
  Company Number: US-SA-SAC20210412000544

PATIENT
  Sex: Female

DRUGS (5)
  1. DUPIXENT [Suspect]
     Active Substance: DUPILUMAB
     Indication: Asthma
     Dosage: 300 MG, QOW
     Route: 058
     Dates: start: 20200530, end: 202103
  2. XANAX [Concomitant]
     Active Substance: ALPRAZOLAM
  3. PREDNISONE [Concomitant]
     Active Substance: PREDNISONE
  4. DOXYCYCLINE [Concomitant]
     Active Substance: DOXYCYCLINE
  5. SPIRIVA [Concomitant]
     Active Substance: TIOTROPIUM BROMIDE MONOHYDRATE

REACTIONS (17)
  - Syncope [Unknown]
  - Asthma [Not Recovered/Not Resolved]
  - Dyspnoea [Not Recovered/Not Resolved]
  - Cough [Not Recovered/Not Resolved]
  - Wheezing [Not Recovered/Not Resolved]
  - Hospitalisation [Unknown]
  - Anxiety [Unknown]
  - Myalgia [Recovered/Resolved]
  - Weight increased [Unknown]
  - Vision blurred [Unknown]
  - Eye pain [Unknown]
  - Pain [Unknown]
  - Asthenia [Unknown]
  - Pruritus [Unknown]
  - Myalgia [Unknown]
  - Frustration tolerance decreased [Unknown]
  - Alopecia [Unknown]

NARRATIVE: CASE EVENT DATE: 20210101
